FAERS Safety Report 24221971 (Version 1)
Quarter: 2024Q3

REPORT INFORMATION
  Report Type: Spontaneous
  Country: US (occurrence: US)
  Receive Date: 20240819
  Receipt Date: 20240819
  Transmission Date: 20241016
  Serious: Yes (Other)
  Sender: JOHNSON AND JOHNSON
  Company Number: US-JNJFOC-20240822528

PATIENT
  Sex: Male

DRUGS (1)
  1. LISTERINE COOL MINT ANTISEPTIC [Suspect]
     Active Substance: EUCALYPTOL\MENTHOL\METHYL SALICYLATE\THYMOL
     Indication: Dental disorder prophylaxis
     Dosage: LIKE HALF A CUP EACH TIME, PRODUCT START DATE: APPROXIMATELY YEAR OF 1970
     Route: 048

REACTIONS (1)
  - Drug abuse [Unknown]
